FAERS Safety Report 9771544 (Version 1)
Quarter: 2013Q4

REPORT INFORMATION
  Report Type: Spontaneous
  Country: US (occurrence: US)
  Receive Date: 20131219
  Receipt Date: 20131219
  Transmission Date: 20140711
  Serious: No
  Sender: FDA-Public Use
  Company Number: 2009BI035996

PATIENT
  Age: 53 Year
  Sex: Female

DRUGS (1)
  1. TYSABRI [Suspect]
     Indication: MULTIPLE SCLEROSIS
     Route: 042
     Dates: start: 20070501, end: 20100302

REACTIONS (12)
  - Stomatitis [Recovered/Resolved]
  - Blindness [Not Recovered/Not Resolved]
  - Gait disturbance [Not Recovered/Not Resolved]
  - Cognitive disorder [Not Recovered/Not Resolved]
  - Weight loss poor [Not Recovered/Not Resolved]
  - Clumsiness [Recovered/Resolved]
  - Memory impairment [Recovered/Resolved]
  - Coordination abnormal [Recovered/Resolved]
  - Mood altered [Recovered/Resolved]
  - Multiple sclerosis relapse [Recovered/Resolved]
  - Nausea [Recovered/Resolved]
  - Nasopharyngitis [Not Recovered/Not Resolved]
